FAERS Safety Report 7555306-4 (Version None)
Quarter: 2011Q2

REPORT INFORMATION
  Report Type: 
  Country: None (occurrence: None)
  Receive Date: 20110617
  Receipt Date: 20110603
  Transmission Date: 20111010
  Serious: Yes (Hospitalization, Other)
  Sender: FDA-Public Use
  Company Number: PHHY2011JP25951

PATIENT
  Sex: Male

DRUGS (7)
  1. TECELEUKIN [Concomitant]
     Dosage: 700000 IU, UNK
     Dates: start: 20080111, end: 20080801
  2. SUNITINIB MALATE [Concomitant]
     Dosage: 50 MG, UNK
     Route: 048
     Dates: start: 20100609, end: 20101101
  3. AFINITOR [Suspect]
     Indication: METASTATIC RENAL CELL CARCINOMA
     Dosage: 10 MG, DAILY
     Route: 048
     Dates: start: 20101108, end: 20101219
  4. INTERFERON ALFA [Concomitant]
     Dosage: 5000000 IU, UNK
     Dates: start: 20070301, end: 20080801
  5. SORAFENIB TOSILATE [Concomitant]
     Dosage: 800 MG, UNK
     Dates: start: 20080903, end: 20100511
  6. RED CELLS MAP [Concomitant]
     Indication: METASTATIC RENAL CELL CARCINOMA
     Dosage: 2 DF, UNK
  7. AFINITOR [Suspect]
     Dosage: 5 MG, DAILY
     Route: 048
     Dates: start: 20110111, end: 20110124

REACTIONS (4)
  - GENERAL PHYSICAL HEALTH DETERIORATION [None]
  - BLOOD CREATININE INCREASED [None]
  - C-REACTIVE PROTEIN INCREASED [None]
  - ANAEMIA [None]
